FAERS Safety Report 25288398 (Version 2)
Quarter: 2025Q2

REPORT INFORMATION
  Report Type: Spontaneous
  Country: US (occurrence: None)
  Receive Date: 20250509
  Receipt Date: 20250521
  Transmission Date: 20250717
  Serious: No
  Sender: INCYTE
  Company Number: US-INCYTE CORPORATION-2025IN004768

PATIENT

DRUGS (1)
  1. JAKAFI [Suspect]
     Active Substance: RUXOLITINIB
     Indication: Polycythaemia vera
     Dosage: 10 MILLIGRAM, BID

REACTIONS (6)
  - Pain [Unknown]
  - Fatigue [Unknown]
  - Oral pain [Unknown]
  - Stomatitis [Unknown]
  - Headache [Unknown]
  - Red blood cell count decreased [Unknown]
